FAERS Safety Report 19390062 (Version 8)
Quarter: 2022Q2

REPORT INFORMATION
  Report Type: Spontaneous
  Country: JP (occurrence: JP)
  Receive Date: 20210608
  Receipt Date: 20220630
  Transmission Date: 20220721
  Serious: Yes (Life-Threatening, Hospitalization, Other)
  Sender: FDA-Public Use
  Company Number: None

PATIENT
  Age: 59 Year
  Sex: Male
  Weight: 78 kg

DRUGS (19)
  1. YERVOY [Suspect]
     Active Substance: IPILIMUMAB
     Indication: Non-small cell lung cancer recurrent
     Dosage: 1 MG/KG, Q6W
     Route: 041
     Dates: start: 20210409, end: 20210409
  2. OPDIVO [Suspect]
     Active Substance: NIVOLUMAB
     Indication: Non-small cell lung cancer recurrent
     Dosage: Q3W
     Route: 041
     Dates: start: 20210409, end: 20210430
  3. OPDIVO [Suspect]
     Active Substance: NIVOLUMAB
     Route: 041
     Dates: start: 20210430, end: 20210430
  4. CARBOPLATIN [Suspect]
     Active Substance: CARBOPLATIN
     Indication: Non-small cell lung cancer recurrent
     Dosage: UNK, Q3W
     Route: 041
     Dates: start: 20210409, end: 20210430
  5. PACLITAXEL [Suspect]
     Active Substance: PACLITAXEL
     Indication: Non-small cell lung cancer recurrent
     Dosage: UNK, Q3W
     Route: 041
     Dates: start: 20210409, end: 20210430
  6. HEPARIN SODIUM [Suspect]
     Active Substance: HEPARIN SODIUM
     Indication: Venous thrombosis
     Dosage: 10000 DF, EVERYDAY
     Route: 065
     Dates: start: 20210521, end: 20210521
  7. HEPARIN SODIUM [Suspect]
     Active Substance: HEPARIN SODIUM
     Indication: Disseminated intravascular coagulation
     Dosage: 15000 DF, EVERYDAY
     Route: 065
     Dates: start: 20210522, end: 20210531
  8. CALCIUM CARBONATE\CHOLECALCIFEROL\MAGNESIUM CARBONATE [Concomitant]
     Active Substance: CALCIUM CARBONATE\CHOLECALCIFEROL\MAGNESIUM CARBONATE
     Indication: Prophylaxis
     Dosage: UNK
     Route: 048
     Dates: start: 20210408
  9. MIYA-BM [Concomitant]
     Active Substance: CLOSTRIDIUM BUTYRICUM SPORES STRAIN M-55
     Indication: Diarrhoea
     Dosage: UNK
     Route: 048
  10. SULFAMETHOXAZOLE\TRIMETHOPRIM [Concomitant]
     Active Substance: SULFAMETHOXAZOLE\TRIMETHOPRIM
     Indication: Product used for unknown indication
     Dosage: DAILY
     Route: 065
  11. COMIRNATY [Concomitant]
     Active Substance: TOZINAMERAN
     Indication: Product used for unknown indication
     Route: 065
     Dates: start: 20210823, end: 20210823
  12. CARBOCYSTEINE [Concomitant]
     Active Substance: CARBOCYSTEINE
     Indication: Product used for unknown indication
     Dosage: UNK
     Route: 048
  13. THEO-DUR [Concomitant]
     Active Substance: THEOPHYLLINE ANHYDROUS
     Indication: Product used for unknown indication
     Dosage: UNK
     Route: 048
  14. LOXOPROFEN SODIUM [Concomitant]
     Active Substance: LOXOPROFEN SODIUM
     Indication: Product used for unknown indication
     Dosage: UNK
     Route: 048
  15. REBAMIPIDE [Concomitant]
     Active Substance: REBAMIPIDE
     Indication: Product used for unknown indication
     Dosage: UNK
     Route: 048
  16. DENOSUMAB [Concomitant]
     Active Substance: DENOSUMAB
     Indication: Product used for unknown indication
     Dosage: 120 MG, Q4W
     Route: 065
     Dates: start: 20210407
  17. PENTASA [Concomitant]
     Active Substance: MESALAMINE
     Indication: Immune-mediated enterocolitis
     Dosage: 2000 MG, Q12H
     Route: 048
     Dates: start: 20210416, end: 20210903
  18. PEGFILGRASTIM [Concomitant]
     Active Substance: PEGFILGRASTIM
     Indication: Product used for unknown indication
     Dosage: UNK
     Route: 065
     Dates: start: 20210502
  19. COVID-19 Vaccine [Concomitant]
     Indication: Product used for unknown indication
     Dosage: UNK
     Route: 065
     Dates: start: 20210730, end: 20210730

REACTIONS (15)
  - Haematoma muscle [Recovering/Resolving]
  - Disseminated intravascular coagulation [Recovering/Resolving]
  - Colitis [Recovered/Resolved]
  - Venous thrombosis [Recovered/Resolved]
  - Neutrophil count decreased [Recovering/Resolving]
  - Immune-mediated hepatic disorder [Recovered/Resolved]
  - Haematochezia [Unknown]
  - Hypoaesthesia [Recovering/Resolving]
  - Pyrexia [Recovered/Resolved]
  - Rash [Unknown]
  - Cytomegalovirus test positive [Unknown]
  - Pyrexia [Unknown]
  - White blood cell count decreased [Recovering/Resolving]
  - Urticaria [Unknown]
  - Loose tooth [Unknown]

NARRATIVE: CASE EVENT DATE: 20210409
